FAERS Safety Report 6923359-X (Version None)
Quarter: 2010Q3

REPORT INFORMATION
  Report Type: 
  Country: None (occurrence: None)
  Receive Date: 20100813
  Receipt Date: 20100807
  Transmission Date: 20110219
  Serious: Yes (Death, Other)
  Sender: FDA-Public Use
  Company Number: GB-SANOFI-AVENTIS-2010SA046878

PATIENT
  Sex: Female

DRUGS (2)
  1. LANTUS [Suspect]
  2. DOXYCYCLINE [Interacting]

REACTIONS (2)
  - DEATH [None]
  - DRUG INTERACTION [None]
